APPROVED DRUG PRODUCT: ALBUTEROL SULFATE
Active Ingredient: ALBUTEROL SULFATE
Strength: EQ 0.09MG BASE/INH
Dosage Form/Route: AEROSOL, METERED;INHALATION
Application: A212447 | Product #001 | TE Code: AB2
Applicant: ARMSTRONG PHARMACEUTICALS INC
Approved: May 21, 2024 | RLD: No | RS: No | Type: RX